FAERS Safety Report 13048222 (Version 1)
Quarter: 2016Q4

REPORT INFORMATION
  Report Type: Spontaneous
  Country: FR (occurrence: FR)
  Receive Date: 20161220
  Receipt Date: 20161220
  Transmission Date: 20170207
  Serious: Yes (Hospitalization, Other)
  Sender: FDA-Public Use
  Company Number: FR-ASTRAZENECA-2016SF33064

PATIENT
  Age: 31480 Day
  Sex: Male

DRUGS (13)
  1. ATACAND [Suspect]
     Active Substance: CANDESARTAN CILEXETIL
     Indication: ACCELERATED HYPERTENSION
     Route: 048
  2. PREVISCAN [Concomitant]
     Active Substance: FLUINDIONE
  3. BISOPROLOL [Concomitant]
     Active Substance: BISOPROLOL
  4. IXPRIM [Concomitant]
     Active Substance: ACETAMINOPHEN\TRAMADOL HYDROCHLORIDE
     Dosage: 4 PER DAY
  5. FLECTOR [Concomitant]
     Active Substance: DICLOFENAC EPOLAMINE
     Dosage: 3 APPLICATIONS PER DAY
  6. CHIBRO-PROSCAR [Concomitant]
     Active Substance: FINASTERIDE
  7. ALDACTONE [Suspect]
     Active Substance: SPIRONOLACTONE
     Indication: CARDIAC FAILURE
     Route: 065
  8. DIFFU K [Suspect]
     Active Substance: POTASSIUM CHLORIDE
     Indication: MINERAL SUPPLEMENTATION
     Route: 065
  9. PANTOPRAZOLE SODIUM. [Concomitant]
     Active Substance: PANTOPRAZOLE SODIUM
  10. KARDEGIC [Concomitant]
     Active Substance: ASPIRIN LYSINE
  11. LERCAN [Concomitant]
     Active Substance: LERCANIDIPINE
  12. DIFFU K [Suspect]
     Active Substance: POTASSIUM CHLORIDE
     Indication: MINERAL SUPPLEMENTATION
     Route: 065
     Dates: start: 20161117
  13. ELUDRIL [Concomitant]
     Active Substance: CHLORHEXIDINE GLUCONATE\CHLOROBUTANOL

REACTIONS (10)
  - Dysuria [Unknown]
  - Decreased appetite [Unknown]
  - Rhythm idioventricular [Unknown]
  - Blood creatinine increased [Unknown]
  - Hyperkalaemia [Recovered/Resolved]
  - Renal impairment [Unknown]
  - Electrocardiogram T wave abnormal [Unknown]
  - Bradycardia [Unknown]
  - Atrioventricular block first degree [Unknown]
  - Hypertension [Unknown]

NARRATIVE: CASE EVENT DATE: 20161110
